FAERS Safety Report 5453966-5 (Version None)
Quarter: 2007Q3

REPORT INFORMATION
  Report Type: 
  Country: None (occurrence: None)
  Receive Date: 20070917
  Receipt Date: 20070228
  Transmission Date: 20080115
  Serious: Yes (Other)
  Sender: FDA-Public Use
  Company Number: US-ASTRAZENECA-2006UW03665

PATIENT
  Age: 15031 Day
  Sex: Female
  Weight: 70.5 kg

DRUGS (2)
  1. SEROQUEL [Suspect]
     Indication: MENTAL DISORDER
     Route: 048
     Dates: start: 20010201
  2. TRILEPTAL [Concomitant]

REACTIONS (6)
  - BLOOD CHOLESTEROL INCREASED [None]
  - DIABETES MELLITUS [None]
  - DYSPHEMIA [None]
  - MUSCLE TWITCHING [None]
  - TARDIVE DYSKINESIA [None]
  - WEIGHT INCREASED [None]
